FAERS Safety Report 8170583-7 (Version None)
Quarter: 2012Q1

REPORT INFORMATION
  Report Type: 
  Country: None (occurrence: None)
  Receive Date: 20120106
  Receipt Date: 20110627
  Transmission Date: 20120608
  Serious: Yes (Life-Threatening, Hospitalization)
  Sender: FDA-Public Use
  Company Number: US-006148

PATIENT
  Age: 41 Year
  Sex: Female
  Weight: 66.4 kg

DRUGS (5)
  1. MEDROL DOSE PACK (METHYLPREDNISOLONE) [Concomitant]
  2. MULTIHANCE [Suspect]
     Indication: HYPOPITUITARISM
     Dosage: 7ML ONCE INTRAVENOUS (NOT OTHERWISE SPECIFIED)
     Route: 042
     Dates: start: 20110413, end: 20110413
  3. MULTIHANCE [Suspect]
     Indication: NUCLEAR MAGNETIC RESONANCE IMAGING
     Dosage: 7ML ONCE INTRAVENOUS (NOT OTHERWISE SPECIFIED)
     Route: 042
     Dates: start: 20110413, end: 20110413
  4. EPIPEN [Concomitant]
  5. BENADRYL [Concomitant]

REACTIONS (1)
  - ANAPHYLACTIC REACTION [None]
